FAERS Safety Report 5066487-9 (Version None)
Quarter: 2006Q3

REPORT INFORMATION
  Report Type: 
  Country: None (occurrence: None)
  Receive Date: 20060731
  Receipt Date: 20060731
  Transmission Date: 20061208
  Serious: Yes (Life-Threatening, Hospitalization, Disabling)
  Sender: FDA-Public Use
  Company Number: None

PATIENT
  Age: 43 Year
  Sex: Female
  Weight: 58.514 kg

DRUGS (2)
  1. CELEBREX [Suspect]
     Indication: PELVIC PAIN
     Dosage: 1 CAPSULE    ONCE A DAY
     Dates: start: 20060327, end: 20060409
  2. CELEBREX [Suspect]
     Indication: SWELLING
     Dosage: 1 CAPSULE    ONCE A DAY
     Dates: start: 20060327, end: 20060409

REACTIONS (3)
  - DRY EYE [None]
  - IMPAIRED HEALING [None]
  - STEVENS-JOHNSON SYNDROME [None]
